FAERS Safety Report 11003869 (Version 2)
Quarter: 2015Q2

REPORT INFORMATION
  Report Type: Spontaneous
  Country: US (occurrence: US)
  Receive Date: 20150409
  Receipt Date: 20150429
  Transmission Date: 20150821
  Serious: Yes (Hospitalization, Other)
  Sender: FDA-Public Use
  Company Number: US-009507513-1504USA002641

PATIENT
  Age: 71 Year
  Sex: Male

DRUGS (12)
  1. HYDROCHLORTHIAZID [Concomitant]
     Active Substance: HYDROCHLOROTHIAZIDE
     Dosage: 12.5 MG DAILY
  2. NIFEDIPINE. [Concomitant]
     Active Substance: NIFEDIPINE
     Dosage: 90 MG, DAILY
  3. ASPIRIN. [Concomitant]
     Active Substance: ASPIRIN
     Dosage: 81 MG, DAILY
  4. CARVEDILOL. [Concomitant]
     Active Substance: CARVEDILOL
     Dosage: 12.5 MG, DAILY
  5. DICLOFENAC [Concomitant]
     Active Substance: DICLOFENAC
     Dosage: UNK, BID
  6. PANTOPRAZOLE [Concomitant]
     Active Substance: PANTOPRAZOLE SODIUM
     Dosage: 40 MG, DAILY
  7. ZOCOR [Concomitant]
     Active Substance: SIMVASTATIN
     Dosage: 20 MG, DAILY
     Route: 048
  8. ACETAMINOPHEN (+) HYDROCODONE BITARTRATE [Concomitant]
     Active Substance: ACETAMINOPHEN\HYDROCODONE
     Dosage: 2 TABS EVERY 4-6 HOURS AS NEEDED
  9. ONDANSETRON [Concomitant]
     Active Substance: ONDANSETRON
     Dosage: 4 MG AS NEEDED, PRN
  10. JANUVIA [Suspect]
     Active Substance: SITAGLIPTIN PHOSPHATE
     Indication: TYPE 2 DIABETES MELLITUS
     Dosage: 100 MG, QD
     Route: 048
     Dates: end: 2014
  11. INSULIN GLARGINE [Concomitant]
     Active Substance: INSULIN GLARGINE
     Dosage: 20 UNK, DAILY
  12. PRINIVIL [Concomitant]
     Active Substance: LISINOPRIL
     Dosage: 20 MG, DAILY
     Route: 048

REACTIONS (2)
  - Pancreatitis [Not Recovered/Not Resolved]
  - Adenocarcinoma pancreas [Not Recovered/Not Resolved]

NARRATIVE: CASE EVENT DATE: 20140403
